FAERS Safety Report 8543413-9 (Version None)
Quarter: 2012Q3

REPORT INFORMATION
  Report Type: 
  Country: None (occurrence: None)
  Receive Date: 20120727
  Receipt Date: 20120717
  Transmission Date: 20120928
  Serious: Yes (Other)
  Sender: FDA-Public Use
  Company Number: JP-PFIZER INC-2012179867

PATIENT
  Age: 37 Year
  Sex: Female

DRUGS (12)
  1. SULFAMETHOXAZOLE AND TRIMETHOPRIM [Concomitant]
     Route: 048
  2. PREDNISOLONE [Concomitant]
  3. MAG-LAX [Concomitant]
     Route: 048
  4. GRANISETRON [Concomitant]
  5. ZOLPIDEM [Suspect]
     Route: 048
  6. PURSENNID [Concomitant]
  7. TALION [Concomitant]
  8. CELEBREX [Suspect]
     Dosage: UNK
     Route: 048
  9. CYCLOPHOSPHAMIDE [Concomitant]
  10. LIPITOR [Suspect]
     Dosage: UNK
     Route: 048
  11. NEORAL [Concomitant]
     Route: 048
  12. LANSOPRAZOLE [Concomitant]

REACTIONS (1)
  - POLYNEUROPATHY [None]
